FAERS Safety Report 15490534 (Version 1)
Quarter: 2018Q4

REPORT INFORMATION
  Report Type: Spontaneous
  Country: DE (occurrence: DE)
  Receive Date: 20181011
  Receipt Date: 20181011
  Transmission Date: 20190205
  Serious: Yes (Hospitalization)
  Sender: FDA-Public Use
  Company Number: DE-MYLANLABS-2018M1072852

PATIENT
  Age: 42 Year
  Sex: Male
  Weight: 97 kg

DRUGS (8)
  1. HYDROCHLOROTHIAZIDE. [Concomitant]
     Active Substance: HYDROCHLOROTHIAZIDE
     Indication: HYPERTENSION
     Route: 065
  2. TRENOL 100 [Suspect]
     Active Substance: TRENBOLONE
     Indication: MUSCLE BUILDING THERAPY
     Dosage: 100 MG, QW
     Route: 030
  3. TELMISARTAN. [Concomitant]
     Active Substance: TELMISARTAN
     Indication: HYPERTENSION
     Route: 065
  4. SIMVASTATIN. [Concomitant]
     Active Substance: SIMVASTATIN
     Indication: PRODUCT USED FOR UNKNOWN INDICATION
     Route: 065
  5. TESTOSTERONE. [Suspect]
     Active Substance: TESTOSTERONE
     Indication: MUSCLE BUILDING THERAPY
     Dosage: 250 MG, TWICE A WEEK, DEPOT
     Route: 030
  6. SOMATOTROPIN (HUMAN) [Suspect]
     Active Substance: SOMATROPIN
     Indication: MUSCLE BUILDING THERAPY
     Dosage: 2 TIMES 2 IU/DAY
     Route: 030
  7. TESTOSTERONE UNDECANOATE. [Suspect]
     Active Substance: TESTOSTERONE UNDECANOATE
     Indication: MUSCLE BUILDING THERAPY
     Dosage: 200 MG, Q2W
     Route: 030
  8. METABOLON [Suspect]
     Active Substance: METHANDROSTENOLONE
     Indication: MUSCLE BUILDING THERAPY
     Dosage: 10 MG, TID
     Route: 048

REACTIONS (3)
  - Focal segmental glomerulosclerosis [Unknown]
  - Chronic kidney disease [Not Recovered/Not Resolved]
  - Drug abuse [Unknown]
